FAERS Safety Report 7622056-5 (Version None)
Quarter: 2011Q3

REPORT INFORMATION
  Report Type: 
  Country: None (occurrence: None)
  Receive Date: 20110720
  Receipt Date: 20110228
  Transmission Date: 20111222
  Serious: Yes (Hospitalization, Other)
  Sender: FDA-Public Use
  Company Number: US-BAYER-2010-006240

PATIENT
  Age: 18 Year
  Sex: Female
  Weight: 100 kg

DRUGS (9)
  1. METRONIDAZOLE [Concomitant]
     Dosage: UNK
     Route: 067
     Dates: start: 20080215
  2. HYDROQUINONE [Concomitant]
     Dosage: UNK
     Route: 061
     Dates: start: 20080728
  3. VALTREX [Concomitant]
     Dosage: 500 MG, UNK
     Route: 048
     Dates: start: 20071214
  4. SINGULAIR [Concomitant]
     Dosage: 10 MG, UNK
     Route: 048
  5. METFORMIN HCL [Concomitant]
     Dosage: 500 MG, UNK
     Route: 048
     Dates: start: 20080728
  6. YASMIN [Suspect]
     Indication: ORAL CONTRACEPTION
     Dosage: UNK
     Dates: start: 20040101, end: 20051201
  7. YASMIN [Suspect]
     Indication: ACNE
  8. ALBUTEROL SULFATE AUTOHALER [Concomitant]
     Dosage: 5 UNK, UNK
  9. AZITHROMYCIN [Concomitant]
     Dosage: 500 MG, UNK
     Route: 048

REACTIONS (2)
  - GALLBLADDER DISORDER [None]
  - CHOLECYSTITIS CHRONIC [None]
